FAERS Safety Report 9507860 (Version 1)
Quarter: 2013Q1

REPORT INFORMATION
  Report Type: Spontaneous
  Country: US (occurrence: None)
  Receive Date: 20130305
  Receipt Date: 20130305
  Transmission Date: 20140127
  Serious: Yes (Hospitalization)
  Sender: FDA-Public Use
  Company Number: 163-21880-11092680

PATIENT
  Age: 50 Year
  Sex: Male

DRUGS (6)
  1. REVLIMID (LENALIDOMIDE) (25 MILLIGRAM, CAPSULES) [Suspect]
     Indication: PLASMA CELL MYELOMA
     Dosage: 25 MG, 1 IN 1 D, OP
     Route: 048
     Dates: start: 20110803, end: 20110912
  2. VELCADE (UNKNOWN) [Concomitant]
  3. TRUVADA (TRUVADA) (TABLETS) [Concomitant]
  4. KALETRA (KALETRA) (TABLETS) [Concomitant]
  5. MVI (MVI) (UNKNOWN) [Concomitant]
  6. DEXAMETHASONE (DEXAMETHASONE) (UNKNOWN) [Concomitant]

REACTIONS (1)
  - Catheter site infection [None]
